FAERS Safety Report 7433535-8 (Version None)
Quarter: 2011Q2

REPORT INFORMATION
  Report Type: 
  Country: None (occurrence: None)
  Receive Date: 20110422
  Receipt Date: 20110419
  Transmission Date: 20111010
  Serious: No
  Sender: FDA-Public Use
  Company Number: US-B.I. PHARMACEUTICALS,INC./RIDGEFIELD-2011-BP-08492BP

PATIENT
  Sex: Female

DRUGS (5)
  1. PREVACID [Concomitant]
     Indication: DYSPEPSIA
     Route: 048
     Dates: start: 20100101
  2. VITAMIN B-12 [Concomitant]
     Indication: PROPHYLAXIS
     Route: 048
  3. ZOCOR [Concomitant]
     Indication: BLOOD CHOLESTEROL INCREASED
     Dates: start: 20010101
  4. VITAMIN D [Concomitant]
     Indication: PROPHYLAXIS
     Route: 048
  5. PRADAXA [Suspect]
     Indication: ATRIAL FIBRILLATION
     Dosage: 300 MG
     Route: 048
     Dates: start: 20110310

REACTIONS (3)
  - NEPHROLITHIASIS [None]
  - BLOOD URINE PRESENT [None]
  - HAEMATURIA [None]
